FAERS Safety Report 7994339-0 (Version None)
Quarter: 2011Q4

REPORT INFORMATION
  Report Type: 
  Country: None (occurrence: None)
  Receive Date: 20111220
  Receipt Date: 20110303
  Transmission Date: 20120403
  Serious: No
  Sender: FDA-Public Use
  Company Number: US-GLAXOSMITHKLINE-A0916444A

PATIENT
  Age: 54 Year
  Sex: Female

DRUGS (3)
  1. CETIRIZINE HCL [Concomitant]
  2. SORIATANE [Suspect]
     Indication: PSORIASIS
     Dosage: 25MG PER DAY
     Route: 048
     Dates: start: 20110118, end: 20110224
  3. SYNTHROID [Concomitant]

REACTIONS (11)
  - WEIGHT DECREASED [None]
  - PARAESTHESIA [None]
  - CHAPPED LIPS [None]
  - TREMOR [None]
  - CHEST DISCOMFORT [None]
  - VISION BLURRED [None]
  - ASTHENIA [None]
  - DRY EYE [None]
  - MOTOR DYSFUNCTION [None]
  - DECREASED APPETITE [None]
  - ANXIETY [None]
